FAERS Safety Report 4461290-2 (Version None)
Quarter: 2004Q3

REPORT INFORMATION
  Report Type: 
  Country: None (occurrence: None)
  Receive Date: 20040928
  Receipt Date: 20040923
  Transmission Date: 20050211
  Serious: Yes (Other)
  Sender: FDA-Public Use
  Company Number: CA-GLAXOSMITHKLINE-A0527358A

PATIENT

DRUGS (4)
  1. LAMICTAL [Suspect]
  2. LOSEC [Concomitant]
  3. SEROQUEL [Concomitant]
  4. CARBAMAZEPINE [Concomitant]

REACTIONS (1)
  - PANCREATITIS [None]
